FAERS Safety Report 5627167-1 (Version None)
Quarter: 2008Q1

REPORT INFORMATION
  Report Type: 
  Country: None (occurrence: None)
  Receive Date: 20080212
  Receipt Date: 20080212
  Transmission Date: 20080703
  Serious: Yes (Hospitalization)
  Sender: FDA-Public Use
  Company Number: None

PATIENT
  Sex: Female
  Weight: 54.55 kg

DRUGS (4)
  1. FLUOROURACIL [Suspect]
     Dosage: 5946 MG
     Dates: end: 20080115
  2. BEVACIZUMAB (RHUMAB VEGF) [Suspect]
     Dosage: 546 MG
     Dates: end: 20080115
  3. CAMPTOSAR [Suspect]
     Dosage: 382 MG
     Dates: end: 20080115
  4. LEUCOVORIN CALCIUM [Suspect]
     Dosage: 1272 MG
     Dates: end: 20080115

REACTIONS (10)
  - ABDOMINAL DISCOMFORT [None]
  - ABDOMINAL PAIN [None]
  - BLOOD CULTURE POSITIVE [None]
  - CONSTIPATION [None]
  - DEHYDRATION [None]
  - HAEMATEMESIS [None]
  - INTESTINAL OBSTRUCTION [None]
  - MALNUTRITION [None]
  - OBSTRUCTION GASTRIC [None]
  - ORAL INTAKE REDUCED [None]
